FAERS Safety Report 13696179 (Version 1)
Quarter: 2017Q2

REPORT INFORMATION
  Report Type: Spontaneous
  Country: US (occurrence: US)
  Receive Date: 20170628
  Receipt Date: 20170628
  Transmission Date: 20170830
  Serious: No
  Sender: FDA-Public Use
  Company Number: US-LUPIN PHARMACEUTICALS INC.-2017-01244

PATIENT
  Age: 49 Year
  Sex: Female
  Weight: 73 kg

DRUGS (2)
  1. CLONAZEPAM. [Concomitant]
     Active Substance: CLONAZEPAM
     Indication: ANXIETY
     Dosage: 0.5 MG, QD
     Route: 048
  2. ZOLPIDEM TARTRATE SUBLINGUAL TABLETS 1.75 MG [Suspect]
     Active Substance: ZOLPIDEM TARTRATE
     Indication: SLEEP DISORDER
     Dosage: 1.75 MG, QD
     Route: 048
     Dates: start: 20170302

REACTIONS (2)
  - Drug ineffective [Unknown]
  - Product package associated injury [Unknown]

NARRATIVE: CASE EVENT DATE: 20170302
